FAERS Safety Report 4840739-7 (Version None)
Quarter: 2005Q4

REPORT INFORMATION
  Report Type: 
  Country: None (occurrence: None)
  Receive Date: 20051130
  Receipt Date: 20051121
  Transmission Date: 20060501
  Serious: Yes (Life-Threatening, Hospitalization, Other)
  Sender: FDA-Public Use
  Company Number: 2005GB02270

PATIENT
  Age: 51 Year
  Sex: Male
  Weight: 76 kg

DRUGS (5)
  1. FELODIPINE [Suspect]
     Route: 048
     Dates: start: 20050820, end: 20051103
  2. AZATHIOPRINE [Suspect]
     Route: 048
     Dates: start: 19990520, end: 20051103
  3. MESALAMINE [Concomitant]
     Route: 048
     Dates: start: 19981006
  4. SALBUTAMOL [Concomitant]
     Route: 055
  5. BECLOMETHASONE DIPROPIONATE [Concomitant]
     Route: 055

REACTIONS (1)
  - HEPATITIS FULMINANT [None]
